FAERS Safety Report 5006817-7 (Version None)
Quarter: 2006Q2

REPORT INFORMATION
  Report Type: 
  Country: None (occurrence: None)
  Receive Date: 20060516
  Receipt Date: 20060502
  Transmission Date: 20061013
  Serious: Yes (Other)
  Sender: FDA-Public Use
  Company Number: 2006RR-02252

PATIENT
  Age: 26 Year
  Sex: Male

DRUGS (2)
  1. FLUOXETINE [Suspect]
     Indication: DEPRESSION
     Dosage: 20 MG
  2. ZOLPIDEM TARTRATE [Concomitant]

REACTIONS (2)
  - BODY DYSMORPHIC DISORDER [None]
  - HYPOAESTHESIA [None]
